FAERS Safety Report 19748297 (Version 1)
Quarter: 2021Q3

REPORT INFORMATION
  Report Type: Spontaneous
  Country: US (occurrence: US)
  Receive Date: 20210825
  Receipt Date: 20210825
  Transmission Date: 20211014
  Serious: No
  Sender: FDA-Public Use
  Company Number: None

PATIENT
  Age: 49 Year
  Sex: Male

DRUGS (1)
  1. REGEN?COV [Suspect]
     Active Substance: CASIRIVIMAB\IMDEVIMAB
     Indication: COVID-19 TREATMENT

REACTIONS (6)
  - Seizure like phenomena [None]
  - Hyperhidrosis [None]
  - Infusion related reaction [None]
  - Confusional state [None]
  - Pallor [None]
  - Bradycardia [None]
